FAERS Safety Report 9352364 (Version 1)
Quarter: 2013Q2

REPORT INFORMATION
  Report Type: Spontaneous
  Country: DE (occurrence: DE)
  Receive Date: 20130617
  Receipt Date: 20130617
  Transmission Date: 20140414
  Serious: Yes (Hospitalization)
  Sender: FDA-Public Use
  Company Number: DE-MERCK-1306DEU006447

PATIENT
  Age: 23 Year
  Sex: Male

DRUGS (1)
  1. AERIUS [Suspect]
     Indication: PROPHYLAXIS
     Dosage: 15 MG, ONCE
     Route: 048
     Dates: start: 20130612

REACTIONS (5)
  - Tremor [Unknown]
  - Overdose [Unknown]
  - Generalised erythema [Unknown]
  - Dyspnoea [Unknown]
  - Headache [Unknown]
